FAERS Safety Report 7305836-5 (Version None)
Quarter: 2011Q1

REPORT INFORMATION
  Report Type: 
  Country: None (occurrence: None)
  Receive Date: 20110222
  Receipt Date: 20110216
  Transmission Date: 20110831
  Serious: No
  Sender: FDA-Public Use
  Company Number: US-PFIZER INC-2011034845

PATIENT
  Sex: Male

DRUGS (1)
  1. DEPO-TESTOSTERONE [Suspect]
     Dosage: UNK

REACTIONS (3)
  - PARAESTHESIA [None]
  - HAEMATOMA [None]
  - HYPOAESTHESIA [None]
